FAERS Safety Report 4930854-1 (Version None)
Quarter: 2006Q1

REPORT INFORMATION
  Report Type: 
  Country: None (occurrence: None)
  Receive Date: 20060302
  Receipt Date: 20060224
  Transmission Date: 20060701
  Serious: Yes (Hospitalization)
  Sender: FDA-Public Use
  Company Number: GB-BOEHRINGER INGELHEIM PHARMACEUTICALS, INC.-2006-UK-00801PF

PATIENT
  Age: 78 Year
  Sex: Male

DRUGS (2)
  1. SPIRIVA [Suspect]
  2. SALBUTAMOL [Concomitant]

REACTIONS (1)
  - CONDITION AGGRAVATED [None]
